FAERS Safety Report 19168505 (Version 3)
Quarter: 2021Q2

REPORT INFORMATION
  Report Type: Spontaneous
  Country: US (occurrence: US)
  Receive Date: 20210422
  Receipt Date: 20210504
  Transmission Date: 20210717
  Serious: Yes (Other)
  Sender: FDA-Public Use
  Company Number: US-GLAXOSMITHKLINE-US2021AMR084200

PATIENT
  Sex: Female

DRUGS (1)
  1. ZEJULA [Suspect]
     Active Substance: NIRAPARIB
     Indication: OVARIAN CANCER
     Dosage: 200 MG, QD
     Dates: start: 20210224, end: 20210328

REACTIONS (5)
  - Neuropathy peripheral [Unknown]
  - Dehydration [Unknown]
  - Dyspepsia [Unknown]
  - Dyspnoea [Unknown]
  - Dry skin [Unknown]
